FAERS Safety Report 10644990 (Version 1)
Quarter: 2014Q4

REPORT INFORMATION
  Report Type: Spontaneous
  Country: SG (occurrence: SG)
  Receive Date: 20141211
  Receipt Date: 20141211
  Transmission Date: 20150529
  Serious: Yes (Hospitalization)
  Sender: FDA-Public Use
  Company Number: SG-ABBVIE-14P-141-1319282-00

PATIENT
  Age: 38 Year
  Sex: Female

DRUGS (2)
  1. PROBIOTIC [Concomitant]
     Active Substance: PROBIOTICS NOS
     Indication: PRODUCT USED FOR UNKNOWN INDICATION
     Route: 048
     Dates: start: 20141127
  2. KLACID [Suspect]
     Active Substance: CLARITHROMYCIN
     Indication: PRODUCT USED FOR UNKNOWN INDICATION
     Route: 048
     Dates: start: 20141127, end: 20141130

REACTIONS (4)
  - Panic reaction [Recovered/Resolved]
  - Anxiety [Recovered/Resolved]
  - Aphonia [Recovered/Resolved]
  - Tetany [Recovered/Resolved]

NARRATIVE: CASE EVENT DATE: 20141130
